FAERS Safety Report 9185919 (Version 2)
Quarter: 2013Q3

REPORT INFORMATION
  Report Type: Spontaneous
  Country: BR (occurrence: BR)
  Receive Date: 20130325
  Receipt Date: 20130920
  Transmission Date: 20140515
  Serious: Yes (Hospitalization, Other)
  Sender: FDA-Public Use
  Company Number: BR-AMGEN-BRASP2013019709

PATIENT
  Age: 69 Year
  Sex: Female
  Weight: 54 kg

DRUGS (7)
  1. ENBREL [Suspect]
     Indication: RHEUMATOID ARTHRITIS
     Dosage: 50 MG, ONCE WEEKLY
     Route: 058
     Dates: start: 201208, end: 20130109
  2. METHOTREXATE [Concomitant]
     Dosage: 10 TABLETS (STRENGTH 2.5MG) ONCE WEEKLY
     Route: 048
  3. PREDNISONE [Concomitant]
     Dosage: 1 TABLET (10 MG), 1X/DAY
  4. OMEPRAZOL                          /00661201/ [Concomitant]
     Dosage: 1 TABLET (20 MG), 1X/DAY
  5. FOLIC ACID [Concomitant]
     Dosage: 2 TABLETS (5 MG EACH TAB), ONCE WEEKLY
  6. PARACETAMOL [Concomitant]
     Dosage: 750 MG, UNK
  7. ALENDRONATE SODIUM [Concomitant]
     Dosage: UNK

REACTIONS (5)
  - Respiratory arrest [Unknown]
  - Diabetes mellitus [Unknown]
  - Hypertension [Unknown]
  - Blood cholesterol increased [Unknown]
  - Pulmonary embolism [Unknown]
